FAERS Safety Report 6894353-2 (Version None)
Quarter: 2010Q3

REPORT INFORMATION
  Report Type: 
  Country: None (occurrence: None)
  Receive Date: 20100802
  Receipt Date: 20100726
  Transmission Date: 20110219
  Serious: Yes (Other)
  Sender: FDA-Public Use
  Company Number: US-BAYER-201017249BCC

PATIENT
  Sex: Male
  Weight: 82 kg

DRUGS (2)
  1. ASPIRIN [Suspect]
     Indication: PROPHYLAXIS
     Dosage: BOTTLE COUNT UNKNOWN
     Route: 048
  2. DARVOCET [Concomitant]
     Route: 065

REACTIONS (2)
  - BARRETT'S OESOPHAGUS [None]
  - GASTROENTERITIS [None]
